FAERS Safety Report 19586163 (Version 2)
Quarter: 2021Q3

REPORT INFORMATION
  Report Type: Spontaneous
  Country: CN (occurrence: CN)
  Receive Date: 20210720
  Receipt Date: 20210802
  Transmission Date: 20211014
  Serious: Yes (Hospitalization)
  Sender: FDA-Public Use
  Company Number: CN-SA-2021SA096526

PATIENT
  Age: 28 Year
  Sex: Female
  Weight: 69.5 kg

DRUGS (3)
  1. PLAQUENIL [Suspect]
     Active Substance: HYDROXYCHLOROQUINE SULFATE
     Dosage: UNK
  2. CLEXANE [Suspect]
     Active Substance: ENOXAPARIN SODIUM
     Indication: THROMBOSIS
     Dosage: .4ML/QD BEFORE 20 WEEKS OF GESTATION AND 0.4ML/QOD AFTER 20 WEEKS OF GESTATION
     Route: 058
     Dates: start: 202011
  3. PLAQUENIL [Suspect]
     Active Substance: HYDROXYCHLOROQUINE SULFATE
     Dosage: 100MG

REACTIONS (3)
  - Maternal exposure during pregnancy [Unknown]
  - Injection site bruising [Recovering/Resolving]
  - Abdominal discomfort [Unknown]

NARRATIVE: CASE EVENT DATE: 202011
